FAERS Safety Report 11500557 (Version 3)
Quarter: 2016Q2

REPORT INFORMATION
  Report Type: Spontaneous
  Country: US (occurrence: US)
  Receive Date: 20150914
  Receipt Date: 20160531
  Transmission Date: 20160815
  Serious: No
  Sender: FDA-Public Use
  Company Number: US-PFIZER INC-2015293845

PATIENT
  Age: 40 Year
  Sex: Female

DRUGS (35)
  1. PROTONIX [Concomitant]
     Active Substance: PANTOPRAZOLE SODIUM
     Dosage: 40 MG, 1X/DAY (1 TABLET BY MOUTH EVERY MORNING)
     Dates: start: 20141031
  2. TOPAMAX [Concomitant]
     Active Substance: TOPIRAMATE
     Dosage: 100 MG, 3X/DAY (1 TAB BY MOUTH 3 (THREE) TIMES DAILY)
     Route: 048
     Dates: start: 20130627
  3. ROXICODONE [Concomitant]
     Active Substance: OXYCODONE HYDROCHLORIDE
     Indication: PAIN
     Dosage: 5 MG, AS NEEDED (1 TAB BY MOUTH ONCE DAILY AS NEEDED)
     Route: 048
     Dates: start: 20150803
  4. ZOFRAN [Concomitant]
     Active Substance: ONDANSETRON HYDROCHLORIDE
     Indication: NAUSEA
     Dosage: 4 MG, AS NEEDED (3 (THREE) TIMES DAILY AS NEEDED )
     Route: 048
     Dates: start: 20150727
  5. PROVENTIL [Concomitant]
     Active Substance: ALBUTEROL
     Indication: WHEEZING
  6. PERIDEX [Concomitant]
     Active Substance: CHLORHEXIDINE GLUCONATE
     Dosage: 0.12% SOLUTION
     Dates: start: 20150909
  7. LYRICA [Suspect]
     Active Substance: PREGABALIN
     Dosage: 300 MG, 3X/DAY
     Route: 048
     Dates: start: 20150821
  8. PROVENTIL [Concomitant]
     Active Substance: ALBUTEROL
     Indication: DYSPNOEA
     Dosage: (EVERY 4 (FOUR) HOURS AS NEEDED ) AS NEEDED
     Route: 045
     Dates: start: 20150123
  9. VENTOLIN [Concomitant]
     Active Substance: ALBUTEROL SULFATE
     Indication: DYSPNOEA
     Dosage: (EVERY 4 (FOUR) HOURS AS NEEDED ), AS NEEDED
     Route: 045
     Dates: start: 20150123
  10. PROAIR HFA [Concomitant]
     Active Substance: ALBUTEROL SULFATE
     Indication: WHEEZING
  11. VIVELLE-DOT [Concomitant]
     Active Substance: ESTRADIOL
     Dosage: (1 PATCH ONTO THE SKIN ) 2X/WEEK
     Route: 062
     Dates: start: 20141229
  12. VENTOLIN [Concomitant]
     Active Substance: ALBUTEROL SULFATE
     Indication: WHEEZING
  13. XYLOCAINE [Concomitant]
     Active Substance: LIDOCAINE HYDROCHLORIDE
     Indication: PAIN
     Dosage: 5 ML, AS NEEDED (3-6 TIMES PER DAY AS NEEDED)
     Route: 048
     Dates: start: 20150116
  14. CIPRO [Concomitant]
     Active Substance: CIPROFLOXACIN HYDROCHLORIDE
     Dosage: 250 MG, 2X/DAY
     Route: 048
     Dates: start: 20151022, end: 20151027
  15. ULTRAM [Concomitant]
     Active Substance: TRAMADOL HYDROCHLORIDE
     Indication: HEADACHE
     Dosage: 50 MG, UNK (NO MORE THAN 3 TIMES PER WEEK )
     Route: 048
     Dates: start: 20150727
  16. NAPROSYN [Concomitant]
     Active Substance: NAPROXEN
     Dosage: 500 MG, 2X/DAY (WITH A MEAL)
     Route: 048
     Dates: start: 20150921
  17. ATARAX [Concomitant]
     Active Substance: HYDROXYZINE\HYDROXYZINE HYDROCHLORIDE
     Dosage: 50 MG, UNK
     Dates: start: 20150624
  18. PROBIOTIC [Concomitant]
     Active Substance: PROBIOTICS NOS
     Dosage: 5 CAPS
     Route: 048
  19. LYRICA [Suspect]
     Active Substance: PREGABALIN
     Dosage: 300 MG, 3X/DAY
     Route: 048
     Dates: start: 20151022
  20. ZANAFLEX [Concomitant]
     Active Substance: TIZANIDINE HYDROCHLORIDE
     Indication: MUSCLE SPASMS
     Dosage: 4 MG, AS NEEDED (3 (THREE) TIMES A DAY AS NEEDED )
     Route: 048
     Dates: start: 20150818
  21. ABILIFY [Concomitant]
     Active Substance: ARIPIPRAZOLE
     Dosage: 5 MG, DAILY (1 TAB BY MOUTH ONCE DAILY)
     Route: 048
     Dates: start: 20130220
  22. TORADOL [Concomitant]
     Active Substance: KETOROLAC TROMETHAMINE
     Indication: MIGRAINE
     Dosage: 24 ML, UNK (MAX OF 3 DOSES PER WEEK)
     Dates: start: 20150323
  23. BENTYL [Concomitant]
     Active Substance: DICYCLOMINE HYDROCHLORIDE
     Dosage: 10 MG, 4X/DAY (4 (FOUR) TIMES DAILY BEFORE MEALS AND NIGHTLY)
     Route: 048
     Dates: start: 20141226
  24. VIVELLE-DOT [Concomitant]
     Active Substance: ESTRADIOL
     Dosage: 0.025 MG/24HR PATCH, 2X/WEEK (1 PATCH ONTO THE SKIN TWICE A WEEK.)
     Route: 062
     Dates: start: 20151008
  25. CYMBALTA [Concomitant]
     Active Substance: DULOXETINE HYDROCHLORIDE
     Dosage: 60 MG, 2X/DAY
     Route: 048
     Dates: start: 20130722
  26. VISTARIL [Concomitant]
     Active Substance: HYDROXYZINE PAMOATE
     Indication: PRURITUS
     Dosage: 50 MG, AS NEEDED (MOUTH 3 (THREE) TIMES DAILY AS NEEDED )
     Route: 048
     Dates: start: 20130409
  27. CHOLESTYRAMINE LIGHT [Concomitant]
     Active Substance: CHOLESTYRAMINE
     Dosage: 4 G, 3X/DAY
     Route: 048
     Dates: start: 20151008
  28. ENTOCORT EC [Concomitant]
     Active Substance: BUDESONIDE
     Dosage: 6 MG, 1X/DAY, TAKE 2 CAPSULE BY MOUTH EVERY MORNING.
     Route: 048
     Dates: start: 20150928
  29. NEURONTIN [Concomitant]
     Active Substance: GABAPENTIN
     Dosage: 100 MG, 3X/DAY
     Route: 048
     Dates: start: 20150821
  30. PAMELOR [Concomitant]
     Active Substance: NORTRIPTYLINE HYDROCHLORIDE
     Dosage: 25 MG, 3X/DAY (3 CAPSULES BY MOUTH AT BEDTIME)
     Route: 048
     Dates: start: 20150429
  31. ATIVAN [Concomitant]
     Active Substance: LORAZEPAM
     Indication: ANXIETY
     Dosage: 1 MG, AS NEEDED (NIGHTLY AT BEDTIME )
     Route: 048
     Dates: start: 20141226
  32. ELAVIL [Concomitant]
     Active Substance: AMITRIPTYLINE HYDROCHLORIDE
     Dosage: 75 MG, 1X/DAY (1 TAB BY MOUTH NIGHTLY )
     Route: 048
     Dates: start: 20150806
  33. VITAMIN D2 [Concomitant]
     Active Substance: ERGOCALCIFEROL
     Dosage: UNK UNK, WEEKLY
     Route: 048
     Dates: start: 20150302
  34. VITAMIN B12 [Concomitant]
     Active Substance: CYANOCOBALAMIN
     Dosage: (1 CC 1M ), MONTHLY
     Dates: start: 20150227
  35. PROAIR HFA [Concomitant]
     Active Substance: ALBUTEROL SULFATE
     Indication: DYSPNOEA
     Dosage: (EVERY 4 (FOUR) HOURS AS NEEDED), AS NEEDED
     Route: 045
     Dates: start: 20150123

REACTIONS (2)
  - Tremor [Unknown]
  - Prescribed overdose [Unknown]
